FAERS Safety Report 5939557-8 (Version None)
Quarter: 2008Q4

REPORT INFORMATION
  Report Type: 
  Country: None (occurrence: None)
  Receive Date: 20081029
  Receipt Date: 20081020
  Transmission Date: 20090506
  Serious: Yes (Other)
  Sender: FDA-Public Use
  Company Number: 100#08#2008-05338

PATIENT
  Age: 61 Year
  Sex: Female

DRUGS (3)
  1. FLUOROURACIL [Suspect]
     Indication: COLON CANCER
     Dosage: SIX CYCLES
  2. LEUCOVORIN CALCIUM [Suspect]
     Indication: COLON CANCER
     Dosage: SIX CYCLES
  3. BEVACIZUMAB (BEVACIZUMAB) [Suspect]
     Indication: COLON CANCER
     Dosage: SIX CYCLES

REACTIONS (5)
  - DRUG TOXICITY [None]
  - EPISTAXIS [None]
  - HYPERTENSION [None]
  - STOMATITIS [None]
  - THERAPY RESPONDER [None]
